FAERS Safety Report 9916003 (Version 1)
Quarter: 2014Q1

REPORT INFORMATION
  Report Type: Spontaneous
  Country: US (occurrence: None)
  Receive Date: 20140219
  Receipt Date: 20140219
  Transmission Date: 20141002
  Serious: Yes (Hospitalization, Other)
  Sender: FDA-Public Use
  Company Number: AUR-APL-2014-01687

PATIENT
  Age: 54 Year
  Sex: Male
  Weight: 73.9 kg

DRUGS (4)
  1. VENLAFAXINE (VENLAFAXINE) [Suspect]
     Indication: PRODUCT USED FOR UNKNOWN INDICATION
     Dosage: 300 MG (150 MG, 2 IN 1 D), UNKNOWN
  2. EFFEXOR (VENLAFAXINE HYDROCHLORIDE) UNKNOWN [Suspect]
     Indication: PRODUCT USED FOR UNKNOWN INDICATION
     Dosage: 75 MG (75 MG, 1 IN 1 D), ORAL
     Route: 048
     Dates: start: 201401, end: 201401
  3. VALIUM (DIAZEPAM) [Concomitant]
  4. LEXAPRO (ESCITALOPRAM OXALATE) [Concomitant]

REACTIONS (5)
  - Fatigue [None]
  - Somnolence [None]
  - Loss of consciousness [None]
  - Product substitution issue [None]
  - Decreased appetite [None]
